FAERS Safety Report 4885055-2 (Version None)
Quarter: 2006Q1

REPORT INFORMATION
  Report Type: 
  Country: None (occurrence: None)
  Receive Date: 20060119
  Receipt Date: 20050816
  Transmission Date: 20060701
  Serious: Yes (Hospitalization, Other)
  Sender: FDA-Public Use
  Company Number: US-MERCK-0508USA03068

PATIENT
  Age: 80 Year
  Sex: Male
  Weight: 68 kg

DRUGS (10)
  1. VIOXX [Suspect]
     Indication: BACK PAIN
     Route: 048
     Dates: start: 20020207, end: 20040901
  2. TYLENOL (CAPLET) [Concomitant]
     Route: 065
  3. DIOVAN [Concomitant]
     Route: 065
  4. PLAVIX [Concomitant]
     Route: 065
  5. LIPITOR [Concomitant]
     Route: 065
  6. COMBIVENT [Concomitant]
     Indication: BRONCHITIS
     Route: 065
  7. ECOTRIN [Concomitant]
     Route: 065
     Dates: end: 20041119
  8. ADVAIR DISKUS 100/50 [Concomitant]
     Indication: BRONCHITIS
     Route: 065
     Dates: start: 20010509
  9. [COMPOSITION UNSPECIFIED] [Concomitant]
     Indication: GLAUCOMA
     Route: 047
  10. VIAGRA [Concomitant]
     Route: 048

REACTIONS (10)
  - AMNESIA [None]
  - ANAEMIA [None]
  - BLOOD PRESSURE DECREASED [None]
  - CEREBROVASCULAR ACCIDENT [None]
  - CEREBROVASCULAR DISORDER [None]
  - CHEST PAIN [None]
  - CONTUSION [None]
  - HYPERLIPIDAEMIA [None]
  - OSTEOARTHRITIS [None]
  - TRANSIENT ISCHAEMIC ATTACK [None]
